FAERS Safety Report 16466614 (Version 1)
Quarter: 2019Q2

REPORT INFORMATION
  Report Type: Spontaneous
  Country: CA (occurrence: CA)
  Receive Date: 20190623
  Receipt Date: 20190623
  Transmission Date: 20190711
  Serious: Yes (Other)
  Sender: FDA-Public Use
  Company Number: CA-TEVA-2019-CA-1067017

PATIENT
  Age: 28 Year
  Sex: Female

DRUGS (3)
  1. OXYGEN. [Suspect]
     Active Substance: OXYGEN
     Route: 065
  2. RANITIDINE. [Suspect]
     Active Substance: RANITIDINE
  3. DEXTROMETHORPHAN HYDROBROMIDE. [Suspect]
     Active Substance: DEXTROMETHORPHAN HYDROBROMIDE
     Route: 031

REACTIONS (1)
  - Exposure during pregnancy [Unknown]
